FAERS Safety Report 17619721 (Version 2)
Quarter: 2020Q2

REPORT INFORMATION
  Report Type: Spontaneous
  Country: US (occurrence: US)
  Receive Date: 20200403
  Receipt Date: 20200627
  Transmission Date: 20200713
  Serious: Yes (Death, Hospitalization, Other)
  Sender: FDA-Public Use
  Company Number: US-009507513-2004USA000891

PATIENT
  Sex: Male

DRUGS (1)
  1. JANUVIA [Suspect]
     Active Substance: SITAGLIPTIN PHOSPHATE
     Indication: TYPE 2 DIABETES MELLITUS
     Dosage: 100 MILLIGRAM, QD
     Route: 048
     Dates: start: 20170118, end: 201804

REACTIONS (20)
  - Pelvic fluid collection [Unknown]
  - Retroperitoneal lymphadenopathy [Unknown]
  - Pancreatic carcinoma metastatic [Unknown]
  - Malaise [Unknown]
  - Death [Fatal]
  - Dyspnoea exertional [Unknown]
  - Lymphadenopathy [Unknown]
  - Sensation of foreign body [Unknown]
  - Pulmonary mass [Unknown]
  - Dizziness [Not Recovered/Not Resolved]
  - Gastric bypass [Unknown]
  - Abdominal lymphadenopathy [Unknown]
  - Eructation [Unknown]
  - Splenic granuloma [Unknown]
  - Adrenal mass [Unknown]
  - Dehydration [Unknown]
  - Flatulence [Unknown]
  - Aortic arteriosclerosis [Unknown]
  - Bone lesion [Unknown]
  - Diverticulum [Unknown]

NARRATIVE: CASE EVENT DATE: 2017
